FAERS Safety Report 10617923 (Version 1)
Quarter: 2014Q4

REPORT INFORMATION
  Report Type: Spontaneous
  Country: FR (occurrence: FR)
  Receive Date: 20141201
  Receipt Date: 20141201
  Transmission Date: 20150529
  Serious: Yes (Hospitalization)
  Sender: FDA-Public Use
  Company Number: FR-ASTRAZENECA-2014SE89761

PATIENT
  Age: 19691 Day
  Sex: Female

DRUGS (20)
  1. LOVENOX [Concomitant]
     Active Substance: ENOXAPARIN SODIUM
     Dates: start: 20140929, end: 20141002
  2. LEVOTHYROX [Concomitant]
     Active Substance: LEVOTHYROXINE
  3. MEDIATENSYL [Concomitant]
     Active Substance: URAPIDIL
  4. NITROUS OXIDE. [Concomitant]
     Active Substance: NITROUS OXIDE
  5. INIPOMP [Concomitant]
     Active Substance: PANTOPRAZOLE SODIUM
     Dates: start: 20140929, end: 20141001
  6. DIAMICRON [Concomitant]
     Active Substance: GLICLAZIDE
  7. DIPRIVAN [Suspect]
     Active Substance: PROPOFOL
     Dosage: ONCE/SINGLE ADMINISTRATION
     Route: 042
     Dates: start: 20140929, end: 20140929
  8. OXYGEN. [Concomitant]
     Active Substance: OXYGEN
  9. LACTATED RINGERS [Concomitant]
     Active Substance: CALCIUM CHLORIDE\POTASSIUM CHLORIDE\SODIUM CHLORIDE\SODIUM LACTATE
  10. SEVORANE [Suspect]
     Active Substance: SEVOFLURANE
     Dosage: ONCE/SINGLE ADMINISTRATION
     Route: 055
     Dates: start: 20140929, end: 20140929
  11. EXACYL [Concomitant]
     Active Substance: TRANEXAMIC ACID
  12. KETAMINE [Concomitant]
     Active Substance: KETAMINE
  13. SUFENTANYL [Concomitant]
     Active Substance: SUFENTANIL
  14. MORPHINE [Concomitant]
     Active Substance: MORPHINE
     Dosage: PCA
     Dates: start: 20140929, end: 20141001
  15. PLAVIX [Concomitant]
     Active Substance: CLOPIDOGREL BISULFATE
  16. CISATRACURIUM [Concomitant]
     Active Substance: CISATRACURIUM
  17. PARACETAMOL [Concomitant]
     Active Substance: ACETAMINOPHEN
     Dosage: INTRAVENOUS AND THEN ORAL
     Dates: start: 20140930, end: 20141003
  18. NEFOPAM MYLAN [Concomitant]
     Active Substance: NEFOPAM
     Dosage: INTRAVENOUS AND THEN ORAL IF NEEDED
     Dates: start: 20140929
  19. PROFENID [Concomitant]
     Active Substance: KETOPROFEN
     Dates: start: 20140929, end: 20141001
  20. TOPALGIC [Concomitant]
     Active Substance: TRAMADOL
     Dates: start: 20140929, end: 20141001

REACTIONS (4)
  - Rhabdomyolysis [Recovering/Resolving]
  - Thrombocytopenia [Recovered/Resolved]
  - Transaminases increased [Recovering/Resolving]
  - Acute kidney injury [Recovering/Resolving]

NARRATIVE: CASE EVENT DATE: 20141003
